FAERS Safety Report 25822921 (Version 1)
Quarter: 2025Q3

REPORT INFORMATION
  Report Type: Spontaneous
  Country: CH (occurrence: CH)
  Receive Date: 20250919
  Receipt Date: 20250919
  Transmission Date: 20251021
  Serious: Yes (Hospitalization)
  Sender: CATALYST PHARMA
  Company Number: CH-CATALYSTPHARMACEUTICALPARTNERS-CH-CATA-25-01385

PATIENT
  Age: 57 Year
  Sex: Male

DRUGS (13)
  1. PERAMPANEL [Suspect]
     Active Substance: PERAMPANEL
     Indication: Anxiety
     Dosage: 2.0 MILLIGRAM(S) (2 MILLIGRAM(S), 1 IN 1 DAY)
     Route: 048
  2. PERAMPANEL [Suspect]
     Active Substance: PERAMPANEL
     Indication: Depression
  3. PERAMPANEL [Suspect]
     Active Substance: PERAMPANEL
     Indication: Partial seizures
  4. VORTIOXETINE [Interacting]
     Active Substance: VORTIOXETINE
     Indication: Anxiety
     Dosage: 20.0 MILLIGRAM(S) (20 MILLIGRAM(S), 1 IN 1 DAY)
     Route: 065
  5. VORTIOXETINE [Interacting]
     Active Substance: VORTIOXETINE
     Indication: Depression
  6. VORTIOXETINE [Interacting]
     Active Substance: VORTIOXETINE
     Indication: Partial seizures
  7. LAMOTRIGINE [Interacting]
     Active Substance: LAMOTRIGINE
     Indication: Anxiety
     Dosage: 600.0 MILLIGRAM(S) (600 MILLIGRAM(S), 1 IN 1 DAY)
     Route: 065
  8. LAMOTRIGINE [Interacting]
     Active Substance: LAMOTRIGINE
     Indication: Depression
  9. LAMOTRIGINE [Interacting]
     Active Substance: LAMOTRIGINE
     Indication: Partial seizures
  10. VALPROIC ACID [Interacting]
     Active Substance: VALPROIC ACID
     Indication: Anxiety
     Dosage: 750.0 MILLIGRAM(S) (750 MILLIGRAM(S), 1 IN 1 DAY)
     Route: 065
  11. VALPROIC ACID [Interacting]
     Active Substance: VALPROIC ACID
     Indication: Depression
  12. VALPROIC ACID [Interacting]
     Active Substance: VALPROIC ACID
     Indication: Partial seizures
  13. ATORVASTATIN [Concomitant]
     Active Substance: ATORVASTATIN
     Indication: Product used for unknown indication
     Dosage: 20.0 MILLIGRAM(S) (20 MILLIGRAM(S), 1 IN 1 DAY)
     Route: 065

REACTIONS (10)
  - Condition aggravated [Not Recovered/Not Resolved]
  - Lumbar vertebral fracture [Unknown]
  - Drug interaction [Unknown]
  - Dizziness [Not Recovered/Not Resolved]
  - Gait disturbance [Not Recovered/Not Resolved]
  - Fall [Not Recovered/Not Resolved]
  - Nausea [Not Recovered/Not Resolved]
  - Vomiting [Not Recovered/Not Resolved]
  - Diplopia [Not Recovered/Not Resolved]
  - Coordination abnormal [Not Recovered/Not Resolved]

NARRATIVE: CASE EVENT DATE: 20250615
